FAERS Safety Report 8393370-3 (Version None)
Quarter: 2012Q2

REPORT INFORMATION
  Report Type: 
  Country: None (occurrence: None)
  Receive Date: 20120529
  Receipt Date: 20120524
  Transmission Date: 20120825
  Serious: No
  Sender: FDA-Public Use
  Company Number: US-TEVA-322928USA

PATIENT
  Sex: Male
  Weight: 68.1 kg

DRUGS (2)
  1. AZILECT [Suspect]
     Indication: PARKINSON'S DISEASE
     Dosage: 1 TABLET;
     Route: 048
     Dates: start: 20111017
  2. CLOPIDOGREL [Concomitant]
     Indication: TRANSIENT ISCHAEMIC ATTACK
     Dates: start: 19990101

REACTIONS (3)
  - EPISTAXIS [None]
  - EYE PAIN [None]
  - ABSCESS [None]
